FAERS Safety Report 7580193-8 (Version None)
Quarter: 2011Q2

REPORT INFORMATION
  Report Type: 
  Country: None (occurrence: None)
  Receive Date: 20110629
  Receipt Date: 20110615
  Transmission Date: 20111010
  Serious: Yes (Hospitalization)
  Sender: FDA-Public Use
  Company Number: US-BAYER-201036636NA

PATIENT
  Sex: Female

DRUGS (13)
  1. HUMIBID [Concomitant]
     Dosage: UNK
     Dates: start: 20021007
  2. NASONEX [Concomitant]
     Dosage: UNK
     Route: 055
     Dates: start: 20030222
  3. METHYLPREDNISOLONE [Concomitant]
     Dosage: UNK
     Route: 048
     Dates: start: 20021019
  4. ZYRTEC [Concomitant]
     Dosage: 10 MG, UNK
     Dates: start: 20030208
  5. ALLEGRA [Concomitant]
     Dosage: 180 MG, UNK
     Route: 048
     Dates: start: 20030517
  6. YASMIN [Suspect]
     Indication: PRODUCT USED FOR UNKNOWN INDICATION
     Dates: start: 20021001, end: 20030725
  7. ALBUTEROL INHALER [Concomitant]
     Route: 055
  8. CLARITIN [Concomitant]
     Dosage: 10 MG, UNK
     Route: 048
     Dates: start: 20021028
  9. DOXYCYCLINE [Concomitant]
     Dosage: 100 MG, UNK
     Route: 048
     Dates: start: 20021007
  10. DIFLUCAN [Concomitant]
     Dosage: 150 MG, UNK
     Route: 048
     Dates: start: 20021023
  11. GUAIFEN [Concomitant]
     Dosage: UNK
     Route: 048
     Dates: start: 20030228
  12. STEROID ANTIBACTERIALS [Concomitant]
     Dosage: UNK
     Route: 048
     Dates: start: 20030228
  13. PREVIDENT [Concomitant]
     Dosage: 5000 PLUS
     Route: 048
     Dates: start: 20030528

REACTIONS (1)
  - PULMONARY EMBOLISM [None]
